FAERS Safety Report 18069670 (Version 12)
Quarter: 2022Q4

REPORT INFORMATION
  Report Type: Spontaneous
  Country: CA (occurrence: CA)
  Receive Date: 20200726
  Receipt Date: 20221116
  Transmission Date: 20230112
  Serious: Yes (Other)
  Sender: FDA-Public Use
  Company Number: CA-CELLTRION INC.-2020CA017847

PATIENT

DRUGS (21)
  1. INFLECTRA [Suspect]
     Active Substance: INFLIXIMAB-DYYB
     Indication: Crohn^s disease
     Dosage: 600 MG, Q 8 WEEKS
     Route: 042
     Dates: start: 20200327
  2. INFLECTRA [Suspect]
     Active Substance: INFLIXIMAB-DYYB
     Dosage: 600 MG, Q 8 WEEKS
     Route: 042
     Dates: start: 20200522
  3. INFLECTRA [Suspect]
     Active Substance: INFLIXIMAB-DYYB
     Dosage: 600 MG, Q 8 WEEKS
     Route: 042
     Dates: start: 20200717
  4. INFLECTRA [Suspect]
     Active Substance: INFLIXIMAB-DYYB
     Dosage: 600 MG, Q 8 WEEKS
     Route: 042
     Dates: start: 20200911
  5. INFLECTRA [Suspect]
     Active Substance: INFLIXIMAB-DYYB
     Dosage: 600 MG, Q 8 WEEKS
     Route: 042
     Dates: start: 20201106
  6. INFLECTRA [Suspect]
     Active Substance: INFLIXIMAB-DYYB
     Dosage: 600 MG, Q 8 WEEKS
     Route: 042
     Dates: start: 20210102
  7. INFLECTRA [Suspect]
     Active Substance: INFLIXIMAB-DYYB
     Dosage: 600 MG, Q 8 WEEKS
     Route: 042
     Dates: start: 20210619
  8. INFLECTRA [Suspect]
     Active Substance: INFLIXIMAB-DYYB
     Dosage: 600 MG, Q 8 WEEKS
     Route: 042
     Dates: start: 20210814
  9. INFLECTRA [Suspect]
     Active Substance: INFLIXIMAB-DYYB
     Dosage: 600 MG, Q 8 WEEKS
     Route: 042
     Dates: start: 20211008
  10. INFLECTRA [Suspect]
     Active Substance: INFLIXIMAB-DYYB
     Dosage: 600 MG, Q 8 WEEKS
     Route: 042
     Dates: start: 20211204
  11. INFLECTRA [Suspect]
     Active Substance: INFLIXIMAB-DYYB
     Dosage: 600 MG, Q 8 WEEKS
     Route: 042
     Dates: start: 20220326
  12. INFLECTRA [Suspect]
     Active Substance: INFLIXIMAB-DYYB
     Dosage: 600 MG, Q 8 WEEKS
     Route: 042
     Dates: start: 20220517
  13. INFLECTRA [Suspect]
     Active Substance: INFLIXIMAB-DYYB
     Dosage: 600 MG, Q 8 WEEKS
     Route: 042
     Dates: start: 20220715
  14. INFLECTRA [Suspect]
     Active Substance: INFLIXIMAB-DYYB
     Dosage: 600 MG, Q 8 WEEKS
     Route: 042
     Dates: start: 20220909
  15. INFLECTRA [Suspect]
     Active Substance: INFLIXIMAB-DYYB
     Dosage: 600 MG, EVERY 8 WEEKS
     Route: 042
     Dates: start: 20221104
  16. BUPROPION [Concomitant]
     Active Substance: BUPROPION
     Indication: Weight decreased
     Dosage: 1 DF, DOSAGE NOT AVAILABLE
     Route: 065
  17. ESCITALOPRAM [Concomitant]
     Active Substance: ESCITALOPRAM OXALATE
     Dosage: 1 DF, DOSAGE NOT AVAILABLE
     Route: 065
  18. LOSARTAN [Concomitant]
     Active Substance: LOSARTAN
     Dosage: 1 DF, DOSAGE NOT AVAILABLE
     Route: 065
  19. NABILONE [Concomitant]
     Active Substance: NABILONE
     Dosage: 1 DF, DOSAGE NOT AVAILABLE
     Route: 065
  20. NALTREXONE [Concomitant]
     Active Substance: NALTREXONE
     Indication: Weight decreased
     Dosage: 1 DF, DOSAGE NOT AVAILABLE
     Route: 065
  21. PANTOPRAZOLE MAGNESIUM [Concomitant]
     Active Substance: PANTOPRAZOLE MAGNESIUM
     Dosage: 40 MG, 1X/DAY
     Route: 048

REACTIONS (8)
  - Colitis ulcerative [Unknown]
  - Condition aggravated [Not Recovered/Not Resolved]
  - Off label use [Unknown]
  - Intentional product use issue [Unknown]
  - Weight fluctuation [Unknown]
  - Arthralgia [Not Recovered/Not Resolved]
  - Spondylitis [Unknown]
  - Malaise [Not Recovered/Not Resolved]

NARRATIVE: CASE EVENT DATE: 20200327
